FAERS Safety Report 6641635-5 (Version None)
Quarter: 2010Q1

REPORT INFORMATION
  Report Type: 
  Country: None (occurrence: None)
  Receive Date: 20100317
  Receipt Date: 20100317
  Transmission Date: 20100710
  Serious: Yes (Hospitalization)
  Sender: FDA-Public Use
  Company Number: None

PATIENT
  Weight: 83 kg

DRUGS (10)
  1. VINORELBINE TARTRATE [Suspect]
     Indication: BREAST CANCER METASTATIC
     Dosage: 39MG
     Dates: start: 20100115, end: 20100226
  2. SORAFENIB 200MG [Suspect]
     Indication: BREAST CANCER METASTATIC
     Dosage: 200MG DAILY
     Dates: start: 20100115, end: 20100312
  3. XANAX [Concomitant]
  4. DECADRON [Concomitant]
  5. EMEND [Concomitant]
  6. FLEETS ENEMA [Concomitant]
  7. REGLAN [Concomitant]
  8. MORPHINE SULFATE [Concomitant]
  9. MS CONTIN [Concomitant]
  10. ZOFRAN [Concomitant]

REACTIONS (2)
  - BONE PAIN [None]
  - CONSTIPATION [None]
